FAERS Safety Report 11305277 (Version 1)
Quarter: 2015Q3

REPORT INFORMATION
  Report Type: Spontaneous
  Country: US (occurrence: US)
  Receive Date: 20150723
  Receipt Date: 20150723
  Transmission Date: 20151125
  Serious: No
  Sender: FDA-Public Use
  Company Number: US-JNJFOC-20141204032

PATIENT
  Age: 83 Year
  Sex: Female
  Weight: 67.59 kg

DRUGS (8)
  1. CALTRATE [Concomitant]
     Active Substance: CALCIUM CARBONATE
     Indication: MINERAL SUPPLEMENTATION
     Route: 065
  2. NEXIUM [Concomitant]
     Active Substance: ESOMEPRAZOLE MAGNESIUM
     Indication: DYSPEPSIA
     Route: 065
  3. ZYRTEC [Suspect]
     Active Substance: CETIRIZINE HYDROCHLORIDE
     Route: 048
  4. ZYRTEC [Suspect]
     Active Substance: CETIRIZINE HYDROCHLORIDE
     Indication: URTICARIA
     Dosage: ONE TABLET DAILY
     Route: 048
     Dates: end: 20141202
  5. CENTRUM SILVER [Concomitant]
     Active Substance: VITAMINS
     Indication: VITAMIN SUPPLEMENTATION
     Route: 065
  6. ST JOSEPHS ASPIRIN [Concomitant]
     Route: 065
  7. TOVIAZ [Concomitant]
     Active Substance: FESOTERODINE FUMARATE
     Indication: HYPERTONIC BLADDER
     Route: 065
  8. SIMVASTATIN. [Concomitant]
     Active Substance: SIMVASTATIN
     Indication: BLOOD CHOLESTEROL INCREASED
     Route: 065

REACTIONS (5)
  - Foreign body [Unknown]
  - Circumstance or information capable of leading to medication error [Unknown]
  - Product packaging issue [Unknown]
  - Product physical issue [Unknown]
  - Product use issue [Unknown]

NARRATIVE: CASE EVENT DATE: 20141202
